FAERS Safety Report 8510849-1 (Version None)
Quarter: 2012Q3

REPORT INFORMATION
  Report Type: 
  Country: None (occurrence: None)
  Receive Date: 20120716
  Receipt Date: 20120702
  Transmission Date: 20120928
  Serious: Yes (Other)
  Sender: FDA-Public Use
  Company Number: US-ELI_LILLY_AND_COMPANY-US201207002324

PATIENT
  Sex: Female
  Weight: 63.492 kg

DRUGS (2)
  1. HUMALOG [Suspect]
     Indication: TYPE 2 DIABETES MELLITUS
     Dosage: 10 U, BID
  2. HUMALOG [Suspect]
     Dosage: 10 U, BID

REACTIONS (2)
  - EXPIRED DRUG ADMINISTERED [None]
  - WEIGHT DECREASED [None]
